FAERS Safety Report 11774242 (Version 1)
Quarter: 2015Q4

REPORT INFORMATION
  Report Type: Spontaneous
  Country: US (occurrence: US)
  Receive Date: 20151124
  Receipt Date: 20151124
  Transmission Date: 20160304
  Serious: Yes (Other)
  Sender: FDA-Public Use
  Company Number: US-BAYER-2015-467013

PATIENT
  Age: 55 Year
  Sex: Female
  Weight: 54.42 kg

DRUGS (1)
  1. MILK OF MAGNESIA ORIGINAL [Suspect]
     Active Substance: MAGNESIUM HYDROXIDE
     Indication: CONSTIPATION
     Dosage: 3 TABLESPOON, PRN
     Route: 048
     Dates: start: 2014

REACTIONS (1)
  - Choking [Recovered/Resolved]

NARRATIVE: CASE EVENT DATE: 2014
